FAERS Safety Report 21370083 (Version 1)
Quarter: 2022Q3

REPORT INFORMATION
  Report Type: Spontaneous
  Country: US (occurrence: US)
  Receive Date: 20220923
  Receipt Date: 20220923
  Transmission Date: 20221027
  Serious: Yes (Other)
  Sender: FDA-Public Use
  Company Number: US-ALVOGEN-2022-ALVOGEN-120897

PATIENT
  Age: 72 Year
  Sex: Female

DRUGS (3)
  1. LIDOCAINE [Suspect]
     Active Substance: LIDOCAINE
     Indication: Trigger finger
  2. EPINEPHRINE [Suspect]
     Active Substance: EPINEPHRINE
     Indication: Trigger finger
  3. BUPIVACAINE [Suspect]
     Active Substance: BUPIVACAINE
     Indication: Trigger finger

REACTIONS (2)
  - Epidermolysis bullosa [Recovered/Resolved]
  - Raynaud^s phenomenon [Not Recovered/Not Resolved]
